FAERS Safety Report 7206038-3 (Version None)
Quarter: 2011Q1

REPORT INFORMATION
  Report Type: 
  Country: None (occurrence: None)
  Receive Date: 20110103
  Receipt Date: 20101221
  Transmission Date: 20110831
  Serious: Yes (Hospitalization, Other)
  Sender: FDA-Public Use
  Company Number: US-ELI_LILLY_AND_COMPANY-US201012005613

PATIENT
  Sex: Female

DRUGS (6)
  1. HUMALOG [Suspect]
     Indication: TYPE 2 DIABETES MELLITUS
     Dosage: 30 U, EACH MORNING
     Dates: start: 20100201
  2. HUMALOG [Suspect]
     Dosage: 37 U, DAILY (1/D)
     Dates: start: 20100201
  3. HUMALOG [Suspect]
     Dosage: UNK, 3/D
     Dates: start: 20100201
  4. HUMULIN N [Suspect]
     Indication: TYPE 2 DIABETES MELLITUS
     Dosage: UNK, 2/D
     Dates: start: 20100201
  5. HUMULIN N [Suspect]
     Dosage: UNK, 2/D
     Dates: start: 20100201
  6. HUMALOG [Suspect]
     Dosage: 37 U, EACH EVENING
     Dates: start: 20100201

REACTIONS (10)
  - DRUG INEFFECTIVE [None]
  - MALAISE [None]
  - MUSCLE SPASMS [None]
  - FEELING ABNORMAL [None]
  - HOSPITALISATION [None]
  - CELLULITIS [None]
  - MUSCLE DISORDER [None]
  - ASTHENIA [None]
  - STENT PLACEMENT [None]
  - DYSPNOEA [None]
